FAERS Safety Report 11361133 (Version 1)
Quarter: 2015Q3

REPORT INFORMATION
  Report Type: Spontaneous
  Country: AU (occurrence: AU)
  Receive Date: 20150810
  Receipt Date: 20150810
  Transmission Date: 20151125
  Serious: Yes (Other)
  Sender: FDA-Public Use
  Company Number: AU-PFIZER INC-2015258726

PATIENT
  Sex: Male

DRUGS (3)
  1. PAROXETINE [Suspect]
     Active Substance: PAROXETINE\PAROXETINE HYDROCHLORIDE
     Dosage: 80 MG, 1X/DAY
  2. PANADEINE FORTE [Concomitant]
     Active Substance: ACETAMINOPHEN\CODEINE PHOSPHATE
     Dosage: UNK
  3. ZELDOX [Suspect]
     Active Substance: ZIPRASIDONE
     Dosage: 40 MG, 2X/DAY
     Dates: start: 2009

REACTIONS (2)
  - Intentional product misuse [Unknown]
  - Coronary artery disease [Unknown]
